FAERS Safety Report 16421872 (Version 1)
Quarter: 2019Q2

REPORT INFORMATION
  Report Type: Spontaneous
  Country: US (occurrence: US)
  Receive Date: 20190612
  Receipt Date: 20190612
  Transmission Date: 20190711
  Serious: No
  Sender: FDA-Public Use
  Company Number: US-MYLANLABS-2019M1049732

PATIENT
  Sex: Female
  Weight: 44 kg

DRUGS (1)
  1. ETHINYLESTRADIOL/NORELGESTROMIN [Suspect]
     Active Substance: ETHINYL ESTRADIOL\NORELGESTROMIN
     Indication: UTERINE PAIN
     Dosage: UNK
     Dates: start: 2019, end: 2019

REACTIONS (8)
  - Breast pain [Recovered/Resolved]
  - Drug ineffective [Unknown]
  - Depressed mood [Recovering/Resolving]
  - Menstruation irregular [Unknown]
  - Weight increased [Recovering/Resolving]
  - Oedema peripheral [Recovering/Resolving]
  - Breast enlargement [Recovered/Resolved]
  - Dysmenorrhoea [Recovered/Resolved]

NARRATIVE: CASE EVENT DATE: 2019
